FAERS Safety Report 5483209-8 (Version None)
Quarter: 2007Q4

REPORT INFORMATION
  Report Type: 
  Country: None (occurrence: None)
  Receive Date: 20071009
  Receipt Date: 20071003
  Transmission Date: 20080405
  Serious: Yes (Death, Hospitalization)
  Sender: FDA-Public Use
  Company Number: 2007SP020161

PATIENT
  Age: 30 Year
  Sex: Male
  Weight: 69 kg

DRUGS (31)
  1. TEMODAL [Suspect]
     Dosage: 150 MG/M2; QD; PO; 200 MG/M2; QD; PO; 200 MG/M2; QD; PO
     Route: 048
     Dates: start: 20060923, end: 20060927
  2. TEMODAL [Suspect]
     Dosage: 150 MG/M2; QD; PO; 200 MG/M2; QD; PO; 200 MG/M2; QD; PO
     Route: 048
     Dates: start: 20061021, end: 20061025
  3. TEMODAL [Suspect]
     Dosage: 150 MG/M2; QD; PO; 200 MG/M2; QD; PO; 200 MG/M2; QD; PO
     Route: 048
     Dates: start: 20061118, end: 20061122
  4. ZANTAC [Concomitant]
  5. RINDERON [Concomitant]
  6. MAGMITT [Concomitant]
  7. PURSENNID [Concomitant]
  8. NAVOBAN [Concomitant]
  9. AMOBAN [Concomitant]
  10. HACHIAZULE [Concomitant]
  11. FRANDOL S [Concomitant]
  12. CATLEP [Concomitant]
  13. AZULENE [Concomitant]
  14. GENTACIN [Concomitant]
  15. VIDARABINE [Concomitant]
  16. ACUATIM [Concomitant]
  17. NEW LECICARBON [Concomitant]
  18. SOLDEM 3A [Concomitant]
  19. LACTEC [Concomitant]
  20. SEFMAZON [Concomitant]
  21. ISOTONIC SODIUM CHLORIDE SOLUTION [Concomitant]
  22. GLYCEOL [Concomitant]
  23. FAMOTIDINE [Concomitant]
  24. NOVO HEPARIN [Concomitant]
  25. PREDOPA [Concomitant]
  26. MULTIVITAMIN ADDITIVE [Concomitant]
  27. AMINO ACIDS NOS W/CARDOHYD. NOS/ELECTROL. NOS [Concomitant]
  28. ELEMENMIC [Concomitant]
  29. LASIX [Concomitant]
  30. SODIUM CHLORIDE [Concomitant]
  31. CEFTAZIDIME [Concomitant]

REACTIONS (10)
  - ALTERED STATE OF CONSCIOUSNESS [None]
  - DISEASE PROGRESSION [None]
  - DYSPHAGIA [None]
  - GAIT DISTURBANCE [None]
  - GENERAL PHYSICAL HEALTH DETERIORATION [None]
  - GLIOBLASTOMA [None]
  - MOBILITY DECREASED [None]
  - PLATELET COUNT DECREASED [None]
  - PNEUMONIA [None]
  - PULMONARY EMBOLISM [None]
